FAERS Safety Report 6038855-X (Version None)
Quarter: 2009Q1

REPORT INFORMATION
  Report Type: 
  Country: None (occurrence: None)
  Receive Date: 20090114
  Receipt Date: 20090114
  Transmission Date: 20090719
  Serious: No
  Sender: FDA-Public Use
  Company Number: None

PATIENT
  Age: 53 Year
  Sex: Male
  Weight: 77.1115 kg

DRUGS (1)
  1. CRESTOR [Suspect]
     Indication: BLOOD CHOLESTEROL
     Dates: start: 20080201, end: 20080822

REACTIONS (7)
  - ARTHRALGIA [None]
  - DIALYSIS [None]
  - LOSS OF EMPLOYMENT [None]
  - MYALGIA [None]
  - NERVE INJURY [None]
  - RENAL FAILURE CHRONIC [None]
  - WEIGHT DECREASED [None]
